FAERS Safety Report 11395295 (Version 5)
Quarter: 2015Q4

REPORT INFORMATION
  Report Type: Spontaneous
  Country: US (occurrence: US)
  Receive Date: 20150819
  Receipt Date: 20151029
  Transmission Date: 20160304
  Serious: Yes (Death, Other)
  Sender: FDA-Public Use
  Company Number: US-BAYER-2015-402729

PATIENT
  Age: 44 Year
  Sex: Male

DRUGS (12)
  1. HYDROCODON HYDROCHLORID KSA [Concomitant]
  2. ZOFRAN [Concomitant]
     Active Substance: ONDANSETRON HYDROCHLORIDE
  3. ADVAIR HFA [Concomitant]
     Active Substance: FLUTICASONE PROPIONATE\SALMETEROL XINAFOATE
  4. BACLOPHEN [Concomitant]
  5. VITAMINE C [Concomitant]
  6. COMPAZINE [Concomitant]
     Active Substance: PROCHLORPERAZINE MALEATE
  7. STIVARGA [Suspect]
     Active Substance: REGORAFENIB
     Indication: COLON CANCER
     Dosage: 160 MG, QD (TAKE 3 WEEKS ON AND 1 WEEK OFF)
     Route: 048
     Dates: start: 20150813
  8. PRILOSEC [Concomitant]
     Active Substance: OMEPRAZOLE MAGNESIUM
  9. PREDNISONE. [Concomitant]
     Active Substance: PREDNISONE
  10. LOPERAMIDE [Concomitant]
     Active Substance: LOPERAMIDE
  11. POTASSIUM [Concomitant]
     Active Substance: POTASSIUM
  12. VENTOLIN [Concomitant]
     Active Substance: ALBUTEROL SULFATE

REACTIONS (6)
  - Death [Fatal]
  - Nausea [Not Recovered/Not Resolved]
  - Metastases to liver [None]
  - Fatigue [Not Recovered/Not Resolved]
  - Liver function test abnormal [Not Recovered/Not Resolved]
  - Laboratory test abnormal [None]

NARRATIVE: CASE EVENT DATE: 201508
